FAERS Safety Report 9349516 (Version 2)
Quarter: 2013Q3

REPORT INFORMATION
  Report Type: Report from Study
  Country: BR (occurrence: BR)
  Receive Date: 20130614
  Receipt Date: 20130808
  Transmission Date: 20140515
  Serious: Yes (Other)
  Sender: FDA-Public Use
  Company Number: BR-ELI_LILLY_AND_COMPANY-BR201306000899

PATIENT
  Age: 86 Year
  Sex: Female
  Weight: 48 kg

DRUGS (4)
  1. TERIPARATIDE [Suspect]
     Indication: SPINAL PAIN
     Dosage: 20 UG, QD
     Route: 058
     Dates: start: 201212
  2. FORASEQ [Concomitant]
     Indication: WHEEZING
     Dosage: UNK, UNKNOWN
     Route: 065
  3. TARGIFOR C [Concomitant]
     Dosage: UNK, UNKNOWN
     Route: 065
  4. AROVIT [Concomitant]
     Indication: BLOOD PRESSURE
     Dosage: UNK, UNKNOWN
     Route: 065

REACTIONS (15)
  - Pericardial effusion [Unknown]
  - Dyspnoea [Not Recovered/Not Resolved]
  - Bone pain [Not Recovered/Not Resolved]
  - Back pain [Not Recovered/Not Resolved]
  - Dysgeusia [Not Recovered/Not Resolved]
  - Ageusia [Unknown]
  - Tongue disorder [Unknown]
  - Oral disorder [Unknown]
  - Abdominal discomfort [Unknown]
  - Off label use [Unknown]
  - Drug dose omission [Unknown]
  - Anxiety [Unknown]
  - Pain [Not Recovered/Not Resolved]
  - Dyspnoea [Not Recovered/Not Resolved]
  - Nausea [Unknown]
